FAERS Safety Report 7200343-2 (Version None)
Quarter: 2010Q4

REPORT INFORMATION
  Report Type: 
  Country: None (occurrence: None)
  Receive Date: 20101214
  Receipt Date: 20101129
  Transmission Date: 20110411
  Serious: Yes (Hospitalization, Other)
  Sender: FDA-Public Use
  Company Number: 2010S1000393

PATIENT
  Age: 71 Year
  Sex: Male

DRUGS (3)
  1. DARVOCET-N 100 [Suspect]
     Indication: BACK PAIN
     Dosage: 100 MG; Q4H; PO
     Route: 048
     Dates: start: 19920101
  2. PLAVIX [Concomitant]
  3. NEBULIZER [Concomitant]

REACTIONS (5)
  - CONSTIPATION [None]
  - DRUG DEPENDENCE [None]
  - DYSURIA [None]
  - THROMBOSIS [None]
  - UNEVALUABLE EVENT [None]
